FAERS Safety Report 8026803-2 (Version None)
Quarter: 2011Q4

REPORT INFORMATION
  Report Type: 
  Country: None (occurrence: None)
  Receive Date: 20111130
  Receipt Date: 20110531
  Transmission Date: 20120403
  Serious: Yes (Hospitalization)
  Sender: FDA-Public Use
  Company Number: US201011005711

PATIENT
  Age: 46 Year
  Sex: Male

DRUGS (5)
  1. AMARYL [Concomitant]
  2. ASPIRIN [Concomitant]
  3. SIMVASTATIN [Concomitant]
  4. METFORMIN HCL [Concomitant]
  5. BYETTA [Suspect]
     Indication: PRODUCT USED FOR UNKNOWN INDICATION
     Dosage: 2/D, SUBCUTANEOUS
     Route: 058

REACTIONS (2)
  - VOMITING [None]
  - NAUSEA [None]
